FAERS Safety Report 12861982 (Version 2)
Quarter: 2016Q4

REPORT INFORMATION
  Report Type: Report from Study
  Country: GB (occurrence: GB)
  Receive Date: 20161019
  Receipt Date: 20161104
  Transmission Date: 20170207
  Serious: Yes (Other)
  Sender: FDA-Public Use
  Company Number: GB-JNJFOC-20161011006

PATIENT
  Sex: Female

DRUGS (1)
  1. STELARA [Suspect]
     Active Substance: USTEKINUMAB
     Indication: PSORIATIC ARTHROPATHY
     Dosage: ON WEEK 4 AS DIRECTED
     Route: 058

REACTIONS (8)
  - Incorrect dose administered [Unknown]
  - Breast discharge [Unknown]
  - Decubitus ulcer [Unknown]
  - Off label use [Unknown]
  - Injury [Unknown]
  - Nipple infection [Unknown]
  - Nail infection [Unknown]
  - Breast mass [Unknown]

NARRATIVE: CASE EVENT DATE: 2016
